FAERS Safety Report 8587765-2 (Version None)
Quarter: 2012Q3

REPORT INFORMATION
  Report Type: 
  Country: None (occurrence: None)
  Receive Date: 20120813
  Receipt Date: 20120723
  Transmission Date: 20120928
  Serious: No
  Sender: FDA-Public Use
  Company Number: US-009507513-1206USA04318

PATIENT

DRUGS (2)
  1. SIMVASTATIN [Concomitant]
     Dosage: UNK MG, UNK
     Route: 048
  2. JANUMET [Suspect]
     Indication: DIABETES MELLITUS
     Dosage: 1000MG/50
     Route: 048
     Dates: start: 20120612, end: 20120616

REACTIONS (2)
  - FATIGUE [None]
  - SOMNOLENCE [None]
